FAERS Safety Report 14609888 (Version 1)
Quarter: 2018Q1

REPORT INFORMATION
  Report Type: Spontaneous
  Country: IT (occurrence: IT)
  Receive Date: 20180307
  Receipt Date: 20180307
  Transmission Date: 20180509
  Serious: Yes (Other)
  Sender: FDA-Public Use
  Company Number: IT-TEVA-2018-IT-862772

PATIENT
  Age: 47 Year
  Sex: Female

DRUGS (1)
  1. FENTANYL. [Suspect]
     Active Substance: FENTANYL
     Indication: MUSCULOSKELETAL PAIN
     Route: 065
     Dates: start: 20171219, end: 20171220

REACTIONS (3)
  - Vomiting [Recovering/Resolving]
  - Dry mouth [Recovering/Resolving]
  - Vertigo CNS origin [Recovering/Resolving]

NARRATIVE: CASE EVENT DATE: 20171220
